FAERS Safety Report 8211083-5 (Version None)
Quarter: 2012Q1

REPORT INFORMATION
  Report Type: 
  Country: None (occurrence: None)
  Receive Date: 20120315
  Receipt Date: 20120306
  Transmission Date: 20120608
  Serious: Yes (Other)
  Sender: FDA-Public Use
  Company Number: US-SANOFI-AVENTIS-2012SA011660

PATIENT
  Age: 79 Year
  Sex: Female
  Weight: 118.18 kg

DRUGS (17)
  1. LANTUS [Suspect]
     Dosage: DOSE:32 UNIT(S)
     Route: 058
     Dates: start: 20110101
  2. ALISKIREN [Concomitant]
  3. AMLODIPINE [Concomitant]
  4. LUMIGAN [Concomitant]
  5. OPHTHALMOLOGICALS [Concomitant]
     Indication: EYE DISORDER
  6. ASPIRIN [Concomitant]
  7. LANTUS [Suspect]
     Indication: TYPE 2 DIABETES MELLITUS
     Dosage: DOSE:28 UNIT(S)
     Route: 058
  8. HYDROCHLOROTHIAZIDE [Concomitant]
  9. SOLOSTAR [Suspect]
     Indication: TYPE 2 DIABETES MELLITUS
  10. ALL OTHER THERAPEUTIC PRODUCTS [Concomitant]
  11. JANUVIA [Concomitant]
  12. MULTI-VITAMINS [Concomitant]
  13. RAMIPRIL [Concomitant]
  14. LEVOXYL [Concomitant]
  15. VITAMIN B-12 [Concomitant]
  16. ALLOPURINOL [Concomitant]
  17. CALCIUM/VITAMIN D [Concomitant]

REACTIONS (2)
  - GLAUCOMA [None]
  - BLOOD GLUCOSE INCREASED [None]
